FAERS Safety Report 8071044 (Version 3)
Quarter: 2013Q1

REPORT INFORMATION
  Report Type: Spontaneous
  Country: US (occurrence: US)
  Receive Date: 20110805
  Receipt Date: 20130130
  Transmission Date: 20140127
  Serious: Yes (Hospitalization, Other)
  Sender: FDA-Public Use
  Company Number: US-ELI_LILLY_AND_COMPANY-US201102005847

PATIENT
  Sex: Female

DRUGS (28)
  1. FORTEO [Suspect]
     Indication: OSTEOPOROSIS
     Dosage: 20 UG, QD
     Route: 065
     Dates: start: 201103
  2. FORTEO [Suspect]
     Dosage: 20 UG, QD
     Route: 065
  3. FORTEO [Suspect]
     Dosage: 20 UG, QD
     Route: 065
  4. FORTEO [Suspect]
     Dosage: 20 UG, QD
  5. DURAGESIC [Concomitant]
  6. HYDROCODONE [Concomitant]
  7. ZESTORETIC [Concomitant]
  8. XALANTAN [Concomitant]
  9. ICAPS [Concomitant]
  10. KEPPRA [Concomitant]
  11. REQUIP [Concomitant]
  12. SPIRIVA [Concomitant]
  13. SYMBICORT [Concomitant]
  14. LOVENOX [Concomitant]
  15. ROCALTROL [Concomitant]
  16. VITAMIN D [Concomitant]
  17. CALCIUM CARBONATE [Concomitant]
  18. LUMIGAN [Concomitant]
  19. MEPROZINE [Concomitant]
  20. IMDUR [Concomitant]
  21. VITAMIN B12 [Concomitant]
  22. ZOCOR [Concomitant]
  23. FOLIC ACID [Concomitant]
  24. SENOKOT [Concomitant]
     Dosage: UNK
  25. WELLBUTRIN [Concomitant]
  26. COREG [Concomitant]
  27. DESYREL [Concomitant]
  28. LEVOTHYROXINE [Concomitant]

REACTIONS (11)
  - Femur fracture [Unknown]
  - Upper limb fracture [Unknown]
  - Fall [Unknown]
  - Fall [Unknown]
  - Rib fracture [Unknown]
  - Lung neoplasm malignant [Unknown]
  - Weight bearing difficulty [Not Recovered/Not Resolved]
  - Nervous system disorder [Unknown]
  - Feeling abnormal [Recovered/Resolved]
  - Macular degeneration [Unknown]
  - Dizziness [Recovered/Resolved]
